FAERS Safety Report 15905432 (Version 1)
Quarter: 2019Q1

REPORT INFORMATION
  Report Type: Spontaneous
  Country: US (occurrence: US)
  Receive Date: 20190204
  Receipt Date: 20190204
  Transmission Date: 20190417
  Serious: No
  Sender: FDA-Public Use
  Company Number: US-MYLANLABS-2019M1003770

PATIENT
  Sex: Female

DRUGS (1)
  1. TADALAFIL TABLETS USP [Suspect]
     Active Substance: TADALAFIL
     Indication: PRODUCT USED FOR UNKNOWN INDICATION
     Dosage: UNK
     Route: 048

REACTIONS (8)
  - Product substitution issue [Unknown]
  - Insomnia [Unknown]
  - Asthenia [Unknown]
  - Headache [Unknown]
  - Swelling face [Unknown]
  - Nasal congestion [Unknown]
  - Disturbance in attention [Unknown]
  - Tinnitus [Unknown]
